FAERS Safety Report 16731137 (Version 1)
Quarter: 2019Q4

REPORT INFORMATION
  Report Type: Spontaneous
  Country: US (occurrence: US)
  Receive Date: 20190822
  Receipt Date: 20190822
  Transmission Date: 20200122
  Serious: No
  Sender: FDA-Public Use
  Company Number: None

PATIENT
  Age: 43 Year
  Sex: Female
  Weight: 83.25 kg

DRUGS (3)
  1. INJECTAFER [Suspect]
     Active Substance: FERRIC CARBOXYMALTOSE
     Indication: ANAEMIA
     Dates: start: 20190801, end: 20190801
  2. NETTLE [Concomitant]
     Active Substance: URTICA DIOICA POLLEN
  3. VIT D3/K2 [Concomitant]

REACTIONS (6)
  - Syncope [None]
  - Diarrhoea [None]
  - Nausea [None]
  - Fatigue [None]
  - Dizziness [None]
  - Pyrexia [None]

NARRATIVE: CASE EVENT DATE: 20190801
